FAERS Safety Report 7210848-6 (Version None)
Quarter: 2011Q1

REPORT INFORMATION
  Report Type: 
  Country: None (occurrence: None)
  Receive Date: 20110105
  Receipt Date: 20101229
  Transmission Date: 20110831
  Serious: Yes (Other)
  Sender: FDA-Public Use
  Company Number: US-PFIZER INC-HQWYE438219AUG04

PATIENT
  Sex: Female

DRUGS (3)
  1. PREMPRO [Suspect]
     Indication: HORMONE REPLACEMENT THERAPY
     Dosage: 0.625 MG/2.5 MG. UNK
     Route: 048
     Dates: start: 19961101, end: 19971201
  2. PREMARIN [Suspect]
     Indication: HORMONE REPLACEMENT THERAPY
     Dosage: 0.625 MG, UNK
     Route: 048
     Dates: start: 19920901, end: 19961101
  3. PROVERA [Suspect]
     Indication: HORMONE REPLACEMENT THERAPY
     Dosage: 2.5 MG, UNK
     Route: 048
     Dates: start: 19920901, end: 19961101

REACTIONS (5)
  - IRRITABLE BOWEL SYNDROME [None]
  - OSTEOPOROSIS [None]
  - BREAST CANCER FEMALE [None]
  - DIVERTICULITIS [None]
  - ANXIETY [None]
